FAERS Safety Report 8808824 (Version 1)
Quarter: 2012Q4

REPORT INFORMATION
  Report Type: Spontaneous
  Country: US (occurrence: None)
  Receive Date: 20120920
  Receipt Date: 20120920
  Transmission Date: 20130627
  Serious: Yes (Other)
  Sender: FDA-Public Use
  Company Number: None

PATIENT
  Age: 69 Year
  Sex: Female
  Weight: 68.04 kg

DRUGS (2)
  1. LIPITOR [Suspect]
     Indication: BLOOD CHOLESTEROL INCREASED
     Dates: start: 20101101, end: 20120825
  2. LIPITOR [Suspect]
     Indication: LDL INCREASED
     Dates: start: 20101101, end: 20120825

REACTIONS (3)
  - Blood glucose increased [None]
  - Hypoaesthesia [None]
  - Amnesia [None]
